FAERS Safety Report 17780813 (Version 1)
Quarter: 2020Q2

REPORT INFORMATION
  Report Type: Spontaneous
  Country: US (occurrence: US)
  Receive Date: 20200513
  Receipt Date: 20200513
  Transmission Date: 20200714
  Serious: Yes (Life-Threatening, Disabling, Other)
  Sender: FDA-Public Use
  Company Number: None

PATIENT

DRUGS (3)
  1. INHALER RITILIAN [Concomitant]
  2. ARMOUR THYROID [Suspect]
     Active Substance: THYROID, PORCINE
     Indication: THYROID DISORDER
     Dosage: ?          QUANTITY:2 DF DOSAGE FORM;?
     Route: 048
     Dates: start: 1990
  3. BABY ASPRIN [Concomitant]
     Active Substance: ASPIRIN

REACTIONS (2)
  - Skin disorder [None]
  - Rash [None]

NARRATIVE: CASE EVENT DATE: 2008
